FAERS Safety Report 15937521 (Version 2)
Quarter: 2020Q3

REPORT INFORMATION
  Report Type: Spontaneous
  Country: CA (occurrence: CA)
  Receive Date: 20190208
  Receipt Date: 20190220
  Transmission Date: 20201104
  Serious: Yes (Hospitalization)
  Sender: FDA-Public Use
  Company Number: CA-CELGENEUS-CAN-20190200800

PATIENT
  Age: 58 Year
  Sex: Male

DRUGS (4)
  1. DURVALUMAB. [Suspect]
     Active Substance: DURVALUMAB
     Indication: PANCREATIC CARCINOMA
     Dosage: 1500 MICROGRAM
     Route: 041
     Dates: start: 20180516
  2. TREMELIMUMAB. [Suspect]
     Active Substance: TREMELIMUMAB
     Indication: PANCREATIC CARCINOMA
     Dosage: 75 MILLIGRAM
     Route: 041
     Dates: start: 20180516
  3. GEMCITABINE. [Suspect]
     Active Substance: GEMCITABINE
     Indication: PANCREATIC CARCINOMA
     Dosage: 1568 MILLIGRAM
     Route: 041
     Dates: start: 20180516
  4. ABRAXANE [Suspect]
     Active Substance: PACLITAXEL
     Indication: PANCREATIC CARCINOMA
     Dosage: 245 MILLIGRAM
     Route: 041
     Dates: start: 20180516

REACTIONS (1)
  - Biliary tract infection [Recovered/Resolved]

NARRATIVE: CASE EVENT DATE: 20190123
